FAERS Safety Report 23069491 (Version 2)
Quarter: 2023Q4

REPORT INFORMATION
  Report Type: Report from Study
  Country: US (occurrence: US)
  Receive Date: 20231016
  Receipt Date: 20231018
  Transmission Date: 20240109
  Serious: No
  Sender: FDA-Public Use
  Company Number: US-002147023-NVSC2023US219641

PATIENT
  Sex: Female

DRUGS (1)
  1. COSENTYX [Suspect]
     Active Substance: SECUKINUMAB
     Indication: Psoriasis
     Dosage: 150 MG, QMO
     Route: 065

REACTIONS (6)
  - Photodermatosis [Unknown]
  - Solar lentigo [Unknown]
  - Lentigo [Unknown]
  - Macule [Unknown]
  - Psoriasis [Unknown]
  - Treatment failure [Unknown]
